FAERS Safety Report 5394239-9 (Version None)
Quarter: 2007Q3

REPORT INFORMATION
  Report Type: 
  Country: None (occurrence: None)
  Receive Date: 20070723
  Receipt Date: 20070510
  Transmission Date: 20080115
  Serious: No
  Sender: FDA-Public Use
  Company Number: A0650793A

PATIENT
  Age: 83 Year
  Sex: Male

DRUGS (4)
  1. AVANDIA [Suspect]
     Dosage: 4MG PER DAY
     Route: 048
     Dates: start: 20070507
  2. METFORMIN HCL [Concomitant]
  3. GLYBURIDE [Concomitant]
  4. ASCORBIC ACID [Concomitant]

REACTIONS (1)
  - DRUG INEFFECTIVE [None]
